FAERS Safety Report 5934014-7 (Version None)
Quarter: 2008Q4

REPORT INFORMATION
  Report Type: 
  Country: None (occurrence: None)
  Receive Date: 20081029
  Receipt Date: 20081021
  Transmission Date: 20090506
  Serious: Yes (Hospitalization, Other)
  Sender: FDA-Public Use
  Company Number: US-GENENTECH-270242

PATIENT
  Age: 51 Year
  Sex: Female

DRUGS (11)
  1. BLINDED BEVACIZUMAB [Suspect]
     Indication: BREAST CANCER
     Dosage: 10 MG/KG, UNK
     Route: 042
     Dates: start: 20080703, end: 20080919
  2. CYCLOPHOSPHAMIDE [Suspect]
     Indication: BREAST CANCER
     Dosage: 10 MG/KG, UNK
     Route: 042
     Dates: start: 20080703, end: 20080919
  3. DOXORUBICIN HCL [Suspect]
     Indication: BREAST CANCER
     Dosage: 10 MG/KG, UNK
     Route: 042
     Dates: start: 20080703, end: 20080919
  4. PACLITAXEL [Suspect]
     Indication: BREAST CANCER
     Dosage: 10 MG/KG, UNK
     Route: 042
     Dates: start: 20080703, end: 20080919
  5. BLINDED BEVACIZUMAB [Suspect]
     Dosage: 15 MG/KG, UNK
     Route: 042
  6. CYCLOPHOSPHAMIDE [Suspect]
     Dosage: 15 MG/KG, UNK
     Route: 042
  7. DOXORUBICIN HCL [Suspect]
     Dosage: 15 MG/KG, UNK
     Route: 042
  8. PACLITAXEL [Suspect]
     Dosage: 15 MG/KG, UNK
     Route: 042
  9. DOXORUBICIN HCL [Concomitant]
     Indication: BREAST CANCER
     Dosage: 60 MG/M2, UNK
     Route: 040
     Dates: start: 20080703
  10. CYCLOPHOSPHAMIDE [Concomitant]
     Indication: BREAST CANCER
     Dosage: 600 MG/M2, UNK
     Route: 042
     Dates: start: 20080703
  11. PACLITAXEL [Concomitant]
     Indication: BREAST CANCER
     Dosage: 80 MG/M2, DAYS1,8,15
     Route: 042
     Dates: start: 20080703, end: 20080925

REACTIONS (1)
  - ACUTE RESPIRATORY DISTRESS SYNDROME [None]
